FAERS Safety Report 18975135 (Version 1)
Quarter: 2021Q1

REPORT INFORMATION
  Report Type: Other
  Country: GB (occurrence: GB)
  Receive Date: 20210306
  Receipt Date: 20210306
  Transmission Date: 20210420
  Serious: Yes (Death, Hospitalization)
  Sender: FDA-Public Use
  Company Number: GB-CELLTRION INC.-2021GB002923

PATIENT

DRUGS (12)
  1. PARAFFIN WHITE SOFT [Concomitant]
  2. FLUCLOXACILLIN SODIUM [Concomitant]
     Active Substance: FLUCLOXACILLIN SODIUM
  3. GENTAMICIN SULFATE. [Concomitant]
     Active Substance: GENTAMICIN SULFATE
  4. LIQUID PARAFFIN [Concomitant]
     Active Substance: MINERAL OIL
     Dosage: 75/25
  5. BETNOVATE [Concomitant]
     Active Substance: BETAMETHASONE
  6. LINEZOLID. [Concomitant]
     Active Substance: LINEZOLID
     Dosage: UNK
  7. EUMOVATE [Concomitant]
     Active Substance: CLOBETASONE BUTYRATE
  8. ENSTILAR [Concomitant]
     Active Substance: BETAMETHASONE DIPROPIONATE\CALCIPOTRIENE HYDRATE
  9. CARMELLOSE SODIUM [Concomitant]
     Active Substance: CARBOXYMETHYLCELLULOSE SODIUM
     Dosage: DROPS
  10. EMOLLIN [Concomitant]
  11. REMSIMA [Suspect]
     Active Substance: INFLIXIMAB
     Indication: PSORIASIS
     Dosage: 120 MG, EVERY 2 WEEKS
     Route: 058
     Dates: start: 20200721
  12. EPINEPHRINE. [Concomitant]
     Active Substance: EPINEPHRINE

REACTIONS (4)
  - Drug ineffective [Fatal]
  - Septic shock [Fatal]
  - Immunosuppression [Fatal]
  - Erythrodermic psoriasis [Fatal]

NARRATIVE: CASE EVENT DATE: 20200828
